FAERS Safety Report 13158785 (Version 2)
Quarter: 2017Q1

REPORT INFORMATION
  Report Type: Spontaneous
  Country: US (occurrence: US)
  Receive Date: 20170127
  Receipt Date: 20170216
  Transmission Date: 20170428
  Serious: Yes (Death)
  Sender: FDA-Public Use
  Company Number: US-LUNDBECK-DKLU2025523

PATIENT
  Age: 8 Month
  Sex: Female
  Weight: 8 kg

DRUGS (4)
  1. SABRIL [Suspect]
     Active Substance: VIGABATRIN
     Indication: CONGENITAL BRAIN DAMAGE
     Route: 048
     Dates: start: 20160825
  2. SABRIL [Suspect]
     Active Substance: VIGABATRIN
     Route: 048
     Dates: end: 20161226
  3. ZONISAMIDE. [Concomitant]
     Active Substance: ZONISAMIDE
     Indication: SEIZURE
     Route: 065
  4. SABRIL [Suspect]
     Active Substance: VIGABATRIN
     Indication: INFANTILE SPASMS
     Route: 048
     Dates: start: 201609

REACTIONS (1)
  - Respiratory failure [Fatal]

NARRATIVE: CASE EVENT DATE: 20161226
